FAERS Safety Report 6321757-9 (Version None)
Quarter: 2009Q3

REPORT INFORMATION
  Report Type: 
  Country: None (occurrence: None)
  Receive Date: 20090824
  Receipt Date: 20090813
  Transmission Date: 20100115
  Serious: Yes (Hospitalization)
  Sender: FDA-Public Use
  Company Number: GB-AMGEN-US361128

PATIENT
  Sex: Female
  Weight: 58 kg

DRUGS (6)
  1. ENBREL [Suspect]
     Indication: RHEUMATOID ARTHRITIS
     Route: 058
     Dates: start: 20070903, end: 20080728
  2. ENBREL [Suspect]
     Route: 058
     Dates: start: 20080916
  3. OMEPRAZOLE [Concomitant]
     Dosage: UNKNOWN
  4. FERROUS SULFATE TAB [Concomitant]
     Dosage: UNKNOWN
  5. AMITRIPTYLINE [Concomitant]
     Dosage: UNKNOWN
  6. ACETAMINOPHEN WITH PROPOXYPHENE HCL TAB [Concomitant]
     Dosage: UNKNOWN

REACTIONS (3)
  - DIARRHOEA [None]
  - INFLAMMATORY BOWEL DISEASE [None]
  - WEIGHT DECREASED [None]
